FAERS Safety Report 6528919-6 (Version None)
Quarter: 2010Q1

REPORT INFORMATION
  Report Type: 
  Country: None (occurrence: None)
  Receive Date: 20100106
  Receipt Date: 20091230
  Transmission Date: 20100710
  Serious: Yes (Other)
  Sender: FDA-Public Use
  Company Number: US-BAXTER-2009BH017335

PATIENT
  Age: 42 Year
  Sex: Female
  Weight: 130 kg

DRUGS (11)
  1. HEPARIN SODIUM INJECTION [Suspect]
     Indication: THROMBOSIS PROPHYLAXIS
     Route: 010
     Dates: start: 20071119, end: 20071119
  2. HEPARIN SODIUM INJECTION [Suspect]
     Route: 010
     Dates: start: 20071122, end: 20071122
  3. HEPARIN SODIUM INJECTION [Suspect]
     Route: 010
     Dates: start: 20080404, end: 20080404
  4. HEPARIN SODIUM INJECTION [Suspect]
     Route: 010
     Dates: start: 20080408, end: 20080408
  5. HEPARIN SODIUM INJECTION [Suspect]
     Route: 010
     Dates: start: 20080428, end: 20080428
  6. HEPARIN SODIUM INJECTION [Suspect]
     Route: 010
     Dates: start: 20080517, end: 20080517
  7. LEVOTHYROXINE SODIUM [Concomitant]
     Indication: DRUG USE FOR UNKNOWN INDICATION
     Route: 065
  8. LABETALOL HCL [Concomitant]
     Indication: DRUG USE FOR UNKNOWN INDICATION
     Route: 065
  9. SENSIPAR [Concomitant]
     Indication: DRUG USE FOR UNKNOWN INDICATION
     Route: 065
  10. IRON [Concomitant]
     Indication: DRUG USE FOR UNKNOWN INDICATION
     Route: 065
  11. EPOGEN [Concomitant]
     Indication: DRUG USE FOR UNKNOWN INDICATION
     Route: 065

REACTIONS (8)
  - ABDOMINAL PAIN UPPER [None]
  - CHEST PAIN [None]
  - DIARRHOEA [None]
  - DIZZINESS [None]
  - HEART RATE INCREASED [None]
  - HYPERHIDROSIS [None]
  - NAUSEA [None]
  - VOMITING [None]
